FAERS Safety Report 9004296 (Version 3)
Quarter: 2013Q2

REPORT INFORMATION
  Report Type: Spontaneous
  Country: US (occurrence: US)
  Receive Date: 20130108
  Receipt Date: 20130617
  Transmission Date: 20140414
  Serious: Yes (Hospitalization)
  Sender: FDA-Public Use
  Company Number: US-ASTELLAS-2013US000052

PATIENT
  Sex: Female
  Weight: 79 kg

DRUGS (1)
  1. VESICARE [Suspect]
     Indication: URINARY INCONTINENCE
     Dosage: 5 MG, UID/QD
     Route: 048
     Dates: start: 20080319

REACTIONS (1)
  - Arthritis [Recovered/Resolved]
